FAERS Safety Report 6286862-4 (Version None)
Quarter: 2009Q3

REPORT INFORMATION
  Report Type: 
  Country: None (occurrence: None)
  Receive Date: 20090727
  Receipt Date: 20090727
  Transmission Date: 20100115
  Serious: No
  Sender: FDA-Public Use
  Company Number: None

PATIENT
  Sex: Female

DRUGS (4)
  1. PANTOPRAZOLE SODIUM [Suspect]
     Indication: DRUG THERAPY
     Dosage: 1QD
     Dates: start: 20090701
  2. PANTOPRAZOLE SODIUM [Suspect]
     Indication: DYSPEPSIA
     Dosage: 1QD
     Dates: start: 20090701
  3. PRILOSEC [Concomitant]
  4. PREVACID [Concomitant]

REACTIONS (1)
  - TREATMENT FAILURE [None]
